FAERS Safety Report 14874086 (Version 1)
Quarter: 2018Q2

REPORT INFORMATION
  Report Type: Report from Study
  Country: AU (occurrence: AU)
  Receive Date: 20180510
  Receipt Date: 20180510
  Transmission Date: 20180711
  Serious: Yes (Other)
  Sender: FDA-Public Use
  Company Number: AU-IPSEN BIOPHARMACEUTICALS, INC.-2018-06687

PATIENT
  Age: 71 Year

DRUGS (2)
  1. MINIPRESS [Suspect]
     Active Substance: PRAZOSIN HYDROCHLORIDE
     Indication: HYPERTENSION
     Dosage: AS NEEDED
     Dates: start: 20180420
  2. SOMATULINE AUTOGEL 60MG [Suspect]
     Active Substance: LANREOTIDE ACETATE
     Indication: ACROMEGALY
     Dosage: 60 MG
     Route: 058
     Dates: start: 20180404

REACTIONS (3)
  - Blood pressure decreased [Unknown]
  - Hypertension [Not Recovered/Not Resolved]
  - Fatigue [Not Recovered/Not Resolved]

NARRATIVE: CASE EVENT DATE: 2018
